FAERS Safety Report 26144900 (Version 1)
Quarter: 2025Q4

REPORT INFORMATION
  Report Type: Report from Study
  Country: US (occurrence: US)
  Receive Date: 20251211
  Receipt Date: 20251211
  Transmission Date: 20260117
  Serious: Yes (Death)
  Sender: ALEXION PHARMACEUTICALS
  Company Number: US-ASTRAZENECA-202512NAM007102US

PATIENT
  Age: 58 Year
  Sex: Female

DRUGS (1)
  1. OLAPARIB [Suspect]
     Active Substance: OLAPARIB
     Indication: Breast cancer female
     Dosage: 150 MILLIGRAM, BID
     Dates: start: 202510

REACTIONS (1)
  - Death [Fatal]

NARRATIVE: CASE EVENT DATE: 20251202
